FAERS Safety Report 4513474-2 (Version None)
Quarter: 2004Q4

REPORT INFORMATION
  Report Type: 
  Country: None (occurrence: None)
  Receive Date: 20041130
  Receipt Date: 20041119
  Transmission Date: 20050328
  Serious: Yes (Hospitalization)
  Sender: FDA-Public Use
  Company Number: 200414372FR

PATIENT
  Age: 79 Year
  Sex: Female

DRUGS (9)
  1. LASILIX [Suspect]
     Route: 048
     Dates: start: 20040910, end: 20040921
  2. PREVISCAN [Suspect]
     Route: 048
     Dates: start: 20040910, end: 20040922
  3. MOPRAL [Suspect]
     Route: 048
     Dates: start: 20040910, end: 20040922
  4. KALEORID [Concomitant]
     Route: 048
     Dates: start: 20040910, end: 20040918
  5. ENDOTELON [Concomitant]
     Route: 048
  6. COZAAR [Concomitant]
     Route: 048
  7. STABLON [Concomitant]
     Route: 048
  8. NOLVADEX [Concomitant]
     Route: 048
     Dates: start: 20000101
  9. CALCIPARINE [Concomitant]
     Route: 058
     Dates: start: 20040910

REACTIONS (7)
  - CYTOLYTIC HEPATITIS [None]
  - EOSINOPHIL COUNT INCREASED [None]
  - HYPERKALAEMIA [None]
  - HYPONATRAEMIA [None]
  - RASH PUSTULAR [None]
  - RENAL FAILURE [None]
  - URTICARIA [None]
